FAERS Safety Report 10867077 (Version 1)
Quarter: 2015Q1

REPORT INFORMATION
  Report Type: Spontaneous
  Country: US (occurrence: US)
  Receive Date: 20150225
  Receipt Date: 20150225
  Transmission Date: 20150721
  Serious: Yes (Other)
  Sender: FDA-Public Use
  Company Number: US-JNJFOC-20150216694

PATIENT
  Sex: Male

DRUGS (1)
  1. REMICADE [Suspect]
     Active Substance: INFLIXIMAB
     Indication: RHEUMATOID ARTHRITIS
     Dosage: ON INFLIXIMAB FOR 7 YEARS
     Route: 042
     Dates: start: 2006

REACTIONS (1)
  - Lung neoplasm [Unknown]

NARRATIVE: CASE EVENT DATE: 2014
